FAERS Safety Report 25399031 (Version 2)
Quarter: 2025Q3

REPORT INFORMATION
  Report Type: Report from Study
  Country: EU (occurrence: EU)
  Receive Date: 20250605
  Receipt Date: 20250724
  Transmission Date: 20251020
  Serious: Yes (Disabling, Other)
  Sender: VIIV
  Company Number: None

PATIENT
  Age: 39 Year
  Sex: Male
  Weight: 66 kg

DRUGS (5)
  1. CABOTEGRAVIR [Suspect]
     Active Substance: CABOTEGRAVIR
     Indication: HIV infection
     Dosage: UNK, Q8W (WEEK 0 SCHEDULE, WEEK 4 AND SUBSEQUENTLY EVERY 8 WEEKS; ADMINISTRATION ON THE LEFT)
  2. RILPIVIRINE [Suspect]
     Active Substance: RILPIVIRINE
     Indication: HIV infection
     Dosage: UNK, Q8W (WEEK 0 SCHEDULE, WEEK 4 AND SUBSEQUENTLY EVERY 8 WEEKS; ADMINISTRATION ON THE RIGHT)
  3. CREATINE [Concomitant]
     Active Substance: CREATINE
     Indication: Product used for unknown indication
     Route: 065
  4. WHEY [Concomitant]
     Active Substance: WHEY
     Indication: Product used for unknown indication
     Route: 065
  5. Bcaa [Concomitant]
     Indication: Product used for unknown indication
     Route: 065

REACTIONS (8)
  - Myalgia [Recovered/Resolved]
  - Injection site haematoma [Recovered/Resolved]
  - Injection site discomfort [Recovered/Resolved]
  - Injection site pain [Recovered/Resolved]
  - Fatigue [Recovered/Resolved]
  - Hypotonia [Recovered/Resolved]
  - Loss of personal independence in daily activities [Unknown]
  - Bedridden [Unknown]
